FAERS Safety Report 26019269 (Version 1)
Quarter: 2025Q4

REPORT INFORMATION
  Report Type: Report from Study
  Country: US (occurrence: US)
  Receive Date: 20251110
  Receipt Date: 20251110
  Transmission Date: 20260118
  Serious: Yes (Other)
  Sender: ABBVIE
  Company Number: US-ABBVIE-6470623

PATIENT
  Age: 82 Year
  Sex: Male

DRUGS (1)
  1. VENCLEXTA [Suspect]
     Active Substance: VENETOCLAX
     Indication: Myelodysplastic syndrome
     Route: 048
     Dates: start: 202505

REACTIONS (4)
  - Ventricular tachycardia [Unknown]
  - Fatigue [Unknown]
  - Asthenia [Unknown]
  - Arrhythmia [Unknown]

NARRATIVE: CASE EVENT DATE: 20250101
